FAERS Safety Report 15277046 (Version 11)
Quarter: 2019Q3

REPORT INFORMATION
  Report Type: Spontaneous
  Country: US (occurrence: US)
  Receive Date: 20180814
  Receipt Date: 20190701
  Transmission Date: 20191004
  Serious: Yes (Hospitalization, Other)
  Sender: FDA-Public Use
  Company Number: US-SA-2018SA159624

PATIENT
  Age: 58 Year
  Sex: Female

DRUGS (2)
  1. PRALUENT [Suspect]
     Active Substance: ALIROCUMAB
     Indication: ARTERIOSCLEROSIS
  2. PRALUENT [Suspect]
     Active Substance: ALIROCUMAB
     Indication: TYPE V HYPERLIPIDAEMIA
     Dosage: 150 MG, QOW
     Route: 058
     Dates: start: 20170615

REACTIONS (7)
  - Unevaluable event [Unknown]
  - Product dose omission [Unknown]
  - Gastrointestinal infection [Unknown]
  - Rhinorrhoea [Unknown]
  - Cardiac failure congestive [Unknown]
  - Pneumonia [Unknown]
  - Colitis [Unknown]

NARRATIVE: CASE EVENT DATE: 20180608
